FAERS Safety Report 4692257-7 (Version None)
Quarter: 2005Q2

REPORT INFORMATION
  Report Type: 
  Country: None (occurrence: None)
  Receive Date: 20050614
  Receipt Date: 20050603
  Transmission Date: 20051028
  Serious: Yes (Death, Other)
  Sender: FDA-Public Use
  Company Number: 2005079817

PATIENT
  Age: 60 Year
  Sex: Male

DRUGS (2)
  1. BEXTRA [Suspect]
     Indication: ILL-DEFINED DISORDER
     Dosage: 40 MG, 1 IN 1D, ORAL
     Route: 048
     Dates: start: 20040901
  2. ENALAPRIL MALEATE [Concomitant]

REACTIONS (3)
  - BLADDER CANCER [None]
  - MYOCARDIAL INFARCTION [None]
  - WEIGHT DECREASED [None]
